FAERS Safety Report 8189443-0 (Version None)
Quarter: 2012Q1

REPORT INFORMATION
  Report Type: 
  Country: None (occurrence: None)
  Receive Date: 20120307
  Receipt Date: 20120304
  Transmission Date: 20120608
  Serious: No
  Sender: FDA-Public Use
  Company Number: US-PFIZER INC-2012057580

PATIENT
  Sex: Female
  Weight: 81.633 kg

DRUGS (1)
  1. ALDACTONE [Suspect]
     Indication: SKIN DISORDER
     Dosage: 100 MG, 1X/DAY
     Route: 048
     Dates: start: 20090101

REACTIONS (1)
  - NAUSEA [None]
